FAERS Safety Report 8553993-5 (Version None)
Quarter: 2012Q3

REPORT INFORMATION
  Report Type: 
  Country: None (occurrence: None)
  Receive Date: 20120731
  Receipt Date: 20120716
  Transmission Date: 20120928
  Serious: Yes (Other)
  Sender: FDA-Public Use
  Company Number: GR-WATSON-2012-12981

PATIENT
  Age: 67 Year
  Sex: Male

DRUGS (2)
  1. METOCLOPRAMIDE INJECTION [Suspect]
     Indication: HICCUPS
     Dosage: UNK
     Route: 048
  2. BETAMETHASONE [Suspect]
     Indication: PAIN
     Dosage: 12 MG, SINGLE
     Route: 008

REACTIONS (3)
  - DYSPNOEA [None]
  - FATIGUE [None]
  - HICCUPS [None]
